FAERS Safety Report 13186291 (Version 1)
Quarter: 2017Q1

REPORT INFORMATION
  Report Type: Spontaneous
  Country: US (occurrence: US)
  Receive Date: 20170204
  Receipt Date: 20170204
  Transmission Date: 20170428
  Serious: No
  Sender: FDA-Public Use
  Company Number: US-TEVA-732094ACC

PATIENT
  Age: 51 Year
  Sex: Female

DRUGS (5)
  1. COPAXONE [Suspect]
     Active Substance: GLATIRAMER ACETATE
     Indication: MULTIPLE SCLEROSIS
     Dosage: 17.1429 MILLIGRAM/MILLILITERS DAILY; PREFILLED SYRINGE
     Route: 058
     Dates: start: 20160719
  2. GABAPENTIN. [Concomitant]
     Active Substance: GABAPENTIN
  3. FLONASE ALGY SPR [Concomitant]
  4. TRIAMCINOLON CRE [Concomitant]
  5. ZYRTEC- D TAB [Concomitant]

REACTIONS (3)
  - Palpitations [Recovered/Resolved]
  - Dizziness [Recovered/Resolved]
  - Dyspnoea [Recovered/Resolved]

NARRATIVE: CASE EVENT DATE: 201611
